FAERS Safety Report 5383580-1 (Version None)
Quarter: 2007Q3

REPORT INFORMATION
  Report Type: 
  Country: None (occurrence: None)
  Receive Date: 20070706
  Receipt Date: 20070626
  Transmission Date: 20080115
  Serious: No
  Sender: FDA-Public Use
  Company Number: B0477726A

PATIENT
  Sex: Female

DRUGS (2)
  1. ZIDOVUDINE [Suspect]
     Indication: HIV INFECTION
  2. IRON SUPPLEMENTS [Concomitant]

REACTIONS (2)
  - ANTEPARTUM HAEMORRHAGE [None]
  - DRUG EXPOSURE DURING PREGNANCY [None]
